FAERS Safety Report 21451538 (Version 2)
Quarter: 2022Q4

REPORT INFORMATION
  Report Type: Spontaneous
  Country: US (occurrence: US)
  Receive Date: 20221013
  Receipt Date: 20221029
  Transmission Date: 20230113
  Serious: Yes (Other)
  Sender: FDA-Public Use
  Company Number: US-TEVA-2022-US-2081736

PATIENT
  Age: 29 Year
  Sex: Female

DRUGS (8)
  1. ACETAZOLAMIDE [Suspect]
     Active Substance: ACETAZOLAMIDE
     Indication: Intraocular pressure increased
     Route: 048
  2. KETOROLAC [Suspect]
     Active Substance: KETOROLAC TROMETHAMINE
     Indication: Cystoid macular oedema
     Route: 065
  3. TRIAMCINOLONE ACETONIDE [Suspect]
     Active Substance: TRIAMCINOLONE ACETONIDE
     Indication: Cystoid macular oedema
     Dosage: RECIEVED MULTIPLE INJECTIONS
     Route: 031
  4. TRIAMCINOLONE ACETONIDE [Suspect]
     Active Substance: TRIAMCINOLONE ACETONIDE
     Dosage: 2MG/0.05 ML; INTRAVITREAL SUSPENSION INJECTION
     Route: 050
  5. PREDNISOLONE ACETATE [Suspect]
     Active Substance: PREDNISOLONE ACETATE
     Indication: Cystoid macular oedema
     Route: 061
  6. AZATHIOPRINE [Suspect]
     Active Substance: AZATHIOPRINE
     Indication: Cystoid macular oedema
     Dosage: INITIAL DOSAGE NOT STATED
     Route: 065
  7. AZATHIOPRINE [Suspect]
     Active Substance: AZATHIOPRINE
     Dosage: 225 MILLIGRAM DAILY; DOSE TITRATED
     Route: 065
  8. ADALIMUMAB [Suspect]
     Active Substance: ADALIMUMAB
     Indication: Cystoid macular oedema
     Route: 058

REACTIONS (4)
  - Drug ineffective [Unknown]
  - Injection site rash [Unknown]
  - Intraocular pressure increased [Unknown]
  - Cataract subcapsular [Unknown]
